FAERS Safety Report 7943521-7 (Version None)
Quarter: 2011Q4

REPORT INFORMATION
  Report Type: 
  Country: None (occurrence: None)
  Receive Date: 20111128
  Receipt Date: 20061226
  Transmission Date: 20120403
  Serious: Yes (Other)
  Sender: FDA-Public Use
  Company Number: PHHY2006KR009257

PATIENT
  Sex: Female

DRUGS (1)
  1. GLEEVEC [Suspect]

REACTIONS (2)
  - COUGH [None]
  - ASTHMA [None]
